FAERS Safety Report 10348780 (Version 1)
Quarter: 2014Q3

REPORT INFORMATION
  Report Type: Spontaneous
  Country: GB (occurrence: GB)
  Receive Date: 20140729
  Receipt Date: 20140729
  Transmission Date: 20150326
  Serious: Yes (Life-Threatening, Hospitalization, Other)
  Sender: FDA-Public Use
  Company Number: GB-PFIZER INC-2014207810

PATIENT
  Age: 65 Year
  Sex: Female
  Weight: 63.5 kg

DRUGS (15)
  1. MEROPENEM. [Suspect]
     Active Substance: MEROPENEM
     Indication: CELLULITIS
     Dosage: 1 G, 3X/DAY
     Route: 042
     Dates: start: 20140617, end: 20140618
  2. AMITRIPTYLINE [Concomitant]
     Active Substance: AMITRIPTYLINE
     Dosage: 25 MG, 1X/DAY
     Dates: end: 20140617
  3. LETROZOLE. [Concomitant]
     Active Substance: LETROZOLE
     Dosage: 2.5 MG, 1X/DAY
  4. MESALAZINE [Concomitant]
     Active Substance: MESALAMINE
     Dosage: 400 MG, 1X/DAY
  5. CLONAZEPAM. [Concomitant]
     Active Substance: CLONAZEPAM
     Dosage: 500 UG, 1X/DAY
  6. BISOPROLOL [Concomitant]
     Active Substance: BISOPROLOL
     Dosage: 3.75 MG, 1X/DAY
  7. TORASEMIDE [Concomitant]
     Active Substance: TORSEMIDE
     Dosage: 2.5 MG, 1X/DAY
  8. CITALOPRAM [Concomitant]
     Active Substance: CITALOPRAM HYDROBROMIDE
     Dosage: 20 MG, 1X/DAY
     Dates: end: 20140617
  9. OXYCONTIN [Concomitant]
     Active Substance: OXYCODONE HYDROCHLORIDE
     Dosage: 20 MG, 2X/DAY
  10. LANSOPRAZOLE. [Concomitant]
     Active Substance: LANSOPRAZOLE
     Dosage: 30 MG, 1X/DAY
  11. CLINDAMYCIN PHOSPHATE. [Suspect]
     Active Substance: CLINDAMYCIN PHOSPHATE
     Indication: CELLULITIS
     Dosage: 600 MG INTRAVENOUSLY THREE TIMES DAILY. TWO DOSES RECEIVED ON THIS DAY.
     Route: 042
     Dates: start: 20140616, end: 20140616
  12. CLINDAMYCIN PHOSPHATE. [Suspect]
     Active Substance: CLINDAMYCIN PHOSPHATE
     Dosage: 1.2 G, 3X/DAY
     Route: 042
     Dates: start: 20140617, end: 20140617
  13. LINEZOLID. [Suspect]
     Active Substance: LINEZOLID
     Indication: CELLULITIS
     Dosage: 600 MG, 2X/DAY
     Route: 042
     Dates: start: 20140617, end: 20140618
  14. PREGABALIN. [Concomitant]
     Active Substance: PREGABALIN
     Dosage: 150 MG, 2X/DAY
  15. PARACETAMOL [Concomitant]
     Active Substance: ACETAMINOPHEN
     Dosage: 1 G, 4X/DAY

REACTIONS (3)
  - Toxic epidermal necrolysis [Recovered/Resolved]
  - Blister [Recovered/Resolved]
  - Erythema [Recovered/Resolved]

NARRATIVE: CASE EVENT DATE: 20140617
